FAERS Safety Report 14205032 (Version 1)
Quarter: 2017Q4

REPORT INFORMATION
  Report Type: Spontaneous
  Country: US (occurrence: US)
  Receive Date: 20171119
  Receipt Date: 20171119
  Transmission Date: 20180321
  Serious: Yes (Disabling)
  Sender: FDA-Public Use
  Company Number: None

PATIENT
  Age: 56 Year
  Sex: Female
  Weight: 67.5 kg

DRUGS (2)
  1. CIPROFLOXACIN 500MG TAB TEV [Suspect]
     Active Substance: CIPROFLOXACIN
     Indication: INFECTION
     Dosage: ?          QUANTITY:1 TABLET(S);?
     Route: 048
     Dates: start: 20171001, end: 20171003
  2. MAGNESIUM [Concomitant]
     Active Substance: MAGNESIUM

REACTIONS (17)
  - Arthralgia [None]
  - Agitation [None]
  - Chills [None]
  - Pain in extremity [None]
  - Muscle spasms [None]
  - Paraesthesia [None]
  - Pyrexia [None]
  - Back pain [None]
  - Dysphonia [None]
  - Confusional state [None]
  - Headache [None]
  - Pruritus [None]
  - Tendon disorder [None]
  - Product quality issue [None]
  - Asthenia [None]
  - Nervousness [None]
  - Visual impairment [None]

NARRATIVE: CASE EVENT DATE: 20171002
